FAERS Safety Report 24753217 (Version 1)
Quarter: 2024Q4

REPORT INFORMATION
  Report Type: Spontaneous
  Country: US (occurrence: US)
  Receive Date: 20241219
  Receipt Date: 20241219
  Transmission Date: 20250114
  Serious: No
  Sender: PACIRA
  Company Number: US-ORG100016242-2024000063

PATIENT
  Age: 51 Year
  Sex: Female

DRUGS (4)
  1. EXPAREL [Suspect]
     Active Substance: BUPIVACAINE
     Indication: Complex regional pain syndrome
     Dosage: DOSAGE NOT PROVIDED, INFILTRATION TO THE MASSETER AND TEMPORALIS
     Route: 050
  2. METHADONE [Concomitant]
     Active Substance: METHADONE HYDROCHLORIDE
     Indication: Product used for unknown indication
     Dosage: DOSAGE NOT PROVIDED
     Route: 048
  3. VALIUM [Concomitant]
     Active Substance: DIAZEPAM
     Indication: Product used for unknown indication
     Dosage: DOSAGE NOT PROVIDED
     Route: 048
  4. WELLBUTRIN [Concomitant]
     Active Substance: BUPROPION HYDROCHLORIDE
     Indication: Product used for unknown indication
     Dosage: DOSAGE NOT PROVIDED
     Route: 048

REACTIONS (2)
  - Off label use [Recovered/Resolved]
  - No adverse event [Unknown]
